FAERS Safety Report 7588163-0 (Version None)
Quarter: 2011Q3

REPORT INFORMATION
  Report Type: 
  Country: None (occurrence: None)
  Receive Date: 20110705
  Receipt Date: 20110608
  Transmission Date: 20111222
  Serious: Yes (Other)
  Sender: FDA-Public Use
  Company Number: US-BAYER-201036474NA

PATIENT
  Age: 29 Year
  Sex: Female
  Weight: 73 kg

DRUGS (12)
  1. YAZ [Suspect]
     Indication: PREMENSTRUAL SYNDROME
     Dosage: UNK
     Route: 048
     Dates: start: 20080101
  2. NEURONTIN [Concomitant]
     Indication: NERVE INJURY
     Dosage: UNK
     Dates: start: 20010101
  3. TYLENOL-500 [Concomitant]
     Dosage: UNK
     Dates: start: 20080101
  4. PROTONIX [Concomitant]
     Dosage: 40 MG, BID
     Route: 048
  5. PERCOCET [Concomitant]
     Indication: ABDOMINAL PAIN UPPER
  6. ALEVE [Concomitant]
     Dosage: UNK
     Dates: start: 20080101
  7. YASMIN [Suspect]
     Indication: PREMENSTRUAL SYNDROME
     Dosage: UNK
     Dates: start: 20050101
  8. YASMIN [Suspect]
  9. PERCOCET [Concomitant]
     Indication: PELVIC PAIN
     Dosage: UNK
     Dates: start: 20080101
  10. YAZ [Suspect]
  11. SUBOXONE [Concomitant]
     Indication: DEPENDENCE
     Dosage: UNK
     Dates: start: 20090101
  12. PROZAC [Concomitant]
     Dosage: 20 MG, QD
     Route: 048

REACTIONS (2)
  - CHOLECYSTITIS CHRONIC [None]
  - CHOLECYSTECTOMY [None]
